FAERS Safety Report 11229493 (Version 1)
Quarter: 2020Q3

REPORT INFORMATION
  Report Type: Spontaneous
  Country: TR (occurrence: TR)
  Receive Date: 20150630
  Receipt Date: 20150630
  Transmission Date: 20201105
  Serious: Yes (Other)
  Sender: FDA-Public Use
  Company Number: PHHY2015TR075482

PATIENT
  Age: 73 Year
  Sex: Female

DRUGS (3)
  1. ALENDRONIC ACID [Suspect]
     Active Substance: ALENDRONIC ACID
     Indication: OSTEOPOROSIS
     Route: 065
  2. IBANDRONIC ACID. [Suspect]
     Active Substance: IBANDRONIC ACID
     Indication: OSTEOPOROSIS
     Route: 065
  3. SALMONCAL [Concomitant]
     Indication: OSTEOPOROSIS
     Route: 065

REACTIONS (4)
  - Back pain [Recovering/Resolving]
  - Pain in extremity [Recovering/Resolving]
  - Bone disorder [Recovering/Resolving]
  - Arthralgia [Recovering/Resolving]
